FAERS Safety Report 11423416 (Version 1)
Quarter: 2015Q3

REPORT INFORMATION
  Report Type: Report from Study
  Country: IN (occurrence: IN)
  Receive Date: 20150827
  Receipt Date: 20150827
  Transmission Date: 20151125
  Serious: Yes (Other)
  Sender: FDA-Public Use
  Company Number: IN-UNITED THERAPEUTICS LTD.-UTC-004184

PATIENT
  Age: 37 Year
  Sex: Female
  Weight: 43.1 kg

DRUGS (8)
  1. AMLODAC [Concomitant]
     Active Substance: AMLODIPINE BESYLATE
     Route: 048
     Dates: start: 20100603
  2. RANITIDINE [Concomitant]
     Active Substance: RANITIDINE\RANITIDINE HYDROCHLORIDE
     Route: 048
     Dates: start: 20101127
  3. AMIFRU [Concomitant]
     Indication: PULMONARY ARTERIAL HYPERTENSION
     Route: 048
     Dates: start: 20100424
  4. CROCIN [Concomitant]
     Active Substance: ACETAMINOPHEN
     Route: 048
     Dates: start: 20101001, end: 20101101
  5. ROMIDON [Concomitant]
     Route: 048
     Dates: start: 20101127
  6. PAN-D [Concomitant]
     Route: 048
     Dates: start: 20101025
  7. BECOSULE-Z [Concomitant]
     Route: 048
     Dates: start: 20101127
  8. UT-15C SR(SUSTAINED-RELEASE TABLET)(TREPROSTINIL DIETHANOLAMINE) [Suspect]
     Active Substance: TREPROSTINIL
     Indication: PULMONARY ARTERIAL HYPERTENSION
     Route: 048
     Dates: start: 20100805

REACTIONS (1)
  - Raynaud^s phenomenon [Recovered/Resolved with Sequelae]

NARRATIVE: CASE EVENT DATE: 20101219
